FAERS Safety Report 4984300-2 (Version None)
Quarter: 2006Q2

REPORT INFORMATION
  Report Type: 
  Country: None (occurrence: None)
  Receive Date: 20060420
  Receipt Date: 20060403
  Transmission Date: 20061013
  Serious: Yes (Death, Hospitalization)
  Sender: FDA-Public Use
  Company Number: 2006000048

PATIENT
  Age: 56 Year
  Sex: Male
  Weight: 75 kg

DRUGS (10)
  1. IRINOTECAN HCL [Suspect]
     Indication: SMALL CELL LUNG CANCER STAGE UNSPECIFIED
     Dosage: 123 MG (123 MG, 1 IN 1 D), INTRAVENOUS
     Route: 042
     Dates: start: 20051209, end: 20051209
  2. CISPLATIN [Suspect]
     Indication: SMALL CELL LUNG CANCER STAGE UNSPECIFIED
     Dosage: 151 MG (151 MG, 1 IN 1D), INTRAVENOUS
     Route: 042
     Dates: start: 20051209, end: 20051209
  3. PRIMPERAN TAB [Concomitant]
  4. LEXOMIL (BROMAZEPAM) [Concomitant]
  5. DURAGESIC-100 [Concomitant]
  6. SOLU-MEDROL [Concomitant]
  7. LASIX [Concomitant]
  8. VOGALENE (METOPIMAZINE) [Concomitant]
  9. ATROPINE [Concomitant]
  10. LOPERAMIDE HCL [Concomitant]

REACTIONS (4)
  - ACUTE RESPIRATORY FAILURE [None]
  - BONE MARROW FAILURE [None]
  - NEUTROPENIA [None]
  - THROMBOCYTOPENIA [None]
